FAERS Safety Report 12155846 (Version 1)
Quarter: 2016Q1

REPORT INFORMATION
  Report Type: Spontaneous
  Country: US (occurrence: US)
  Receive Date: 20160307
  Receipt Date: 20160307
  Transmission Date: 20160526
  Serious: No
  Sender: FDA-Public Use
  Company Number: US-ASTRAZENECA-2016SE18296

PATIENT
  Age: 65 Year
  Sex: Female
  Weight: 59 kg

DRUGS (9)
  1. CENTRUM SILVER [Concomitant]
     Active Substance: MINERALS\VITAMINS
     Indication: SUPPLEMENTATION THERAPY
     Dosage: DAILY
     Route: 048
  2. LISINOPRIL. [Suspect]
     Active Substance: LISINOPRIL
     Indication: HYPERTENSION
     Route: 048
     Dates: start: 1991
  3. LOW-DOSE ASPIRIN [Concomitant]
     Active Substance: ASPIRIN
     Indication: CARDIOVASCULAR DISORDER
     Dosage: DAILY
     Route: 048
  4. BYETTA [Suspect]
     Active Substance: EXENATIDE
     Indication: TYPE 2 DIABETES MELLITUS
     Route: 058
     Dates: start: 2003
  5. STOOL SOFTENER [Concomitant]
     Active Substance: DOCUSATE CALCIUM
     Indication: CONSTIPATION
     Route: 048
     Dates: start: 2013
  6. ALEVE [Concomitant]
     Active Substance: NAPROXEN SODIUM
     Indication: ARTHRITIS
     Dosage: INTERMITTENT
     Route: 048
     Dates: start: 2014
  7. GLIMEPIRIDE. [Concomitant]
     Active Substance: GLIMEPIRIDE
     Indication: TYPE 2 DIABETES MELLITUS
     Route: 048
  8. OCUVITE [Concomitant]
     Active Substance: VITAMINS
     Indication: RETINAL OEDEMA
     Dosage: DAILY
     Route: 048
     Dates: start: 2008
  9. METFORMIN [Concomitant]
     Active Substance: METFORMIN HYDROCHLORIDE
     Indication: TYPE 2 DIABETES MELLITUS
     Route: 048
     Dates: start: 2004

REACTIONS (5)
  - Intentional device misuse [Unknown]
  - Arthritis [Not Recovered/Not Resolved]
  - Retinal oedema [Not Recovered/Not Resolved]
  - Constipation [Not Recovered/Not Resolved]
  - Incorrect dose administered [Unknown]

NARRATIVE: CASE EVENT DATE: 2008
